FAERS Safety Report 18900261 (Version 2)
Quarter: 2021Q1

REPORT INFORMATION
  Report Type: Report from Study
  Country: None (occurrence: HU)
  Receive Date: 20210217
  Receipt Date: 20210227
  Transmission Date: 20210420
  Serious: Yes (Death, Hospitalization)
  Sender: FDA-Public Use
  Company Number: HU-ABBVIE-21K-076-3776047-00

PATIENT
  Sex: Female

DRUGS (10)
  1. DUODOPA [Suspect]
     Active Substance: CARBIDOPA\LEVODOPA
     Indication: PARKINSON^S DISEASE
     Dosage: MORNING DOSE: 4.0 ML; CONTINUOUS DOSE: 1.3 ML; EXTRA DOSE: 0.8 ML
     Route: 050
     Dates: start: 20140724
  2. ACILESOL [Concomitant]
     Active Substance: RABEPRAZOLE SODIUM
     Indication: PRODUCT USED FOR UNKNOWN INDICATION
     Dosage: 1 TABLET AT THE EVENING
     Route: 048
  3. AMILOZID [Concomitant]
     Indication: HYPERTENSION
     Route: 048
  4. BACLOFEN. [Concomitant]
     Active Substance: BACLOFEN
     Indication: MUSCLE RELAXANT THERAPY
     Dosage: 1 TABLET IN THE MORNING
     Route: 048
  5. CITAGEN [Concomitant]
     Indication: DEPRESSION
     Dosage: 1 TABLET AT THE EVENING
     Route: 048
  6. ENTEROL [Concomitant]
     Indication: PRODUCT USED FOR UNKNOWN INDICATION
  7. KLION [Concomitant]
     Indication: PRODUCT USED FOR UNKNOWN INDICATION
     Dates: start: 20210113
  8. CLEXANE [Concomitant]
     Active Substance: ENOXAPARIN SODIUM
     Indication: PROPHYLAXIS
     Dosage: 4000 IU IN THE MORNING
     Route: 058
  9. FRONTIN [Concomitant]
     Active Substance: ALPRAZOLAM
     Indication: ANXIETY
     Dosage: 1 TABLET IN THE EVENING
     Route: 048
  10. DUODOPA [Suspect]
     Active Substance: CARBIDOPA\LEVODOPA

REACTIONS (13)
  - Respiratory failure [Fatal]
  - General physical health deterioration [Unknown]
  - Urinary tract infection [Unknown]
  - COVID-19 [Fatal]
  - Cardiomyopathy [Fatal]
  - Myocardial ischaemia [Fatal]
  - Pyuria [Not Recovered/Not Resolved]
  - Circulatory collapse [Fatal]
  - Pneumonia [Unknown]
  - Anal incontinence [Unknown]
  - Parkinson^s disease [Fatal]
  - Atrial fibrillation [Fatal]
  - Arteriosclerosis [Fatal]

NARRATIVE: CASE EVENT DATE: 202002
